FAERS Safety Report 9809996 (Version 18)
Quarter: 2016Q2

REPORT INFORMATION
  Report Type: Spontaneous
  Country: US (occurrence: US)
  Receive Date: 20140110
  Receipt Date: 20160524
  Transmission Date: 20160815
  Serious: Yes (Hospitalization, Other)
  Sender: FDA-Public Use
  Company Number: US-SANOFI-AVENTIS-2013SA068339

PATIENT
  Age: 56 Year
  Sex: Male
  Weight: 123 kg

DRUGS (46)
  1. PLAVIX [Suspect]
     Active Substance: CLOPIDOGREL BISULFATE
     Indication: MYOCARDIAL INFARCTION
     Route: 048
     Dates: start: 20100505, end: 20100813
  2. ASPIRIN. [Concomitant]
     Active Substance: ASPIRIN
     Route: 048
  3. SOMA [Concomitant]
     Active Substance: CARISOPRODOL
     Indication: PAIN
  4. OXYCONTIN [Concomitant]
     Active Substance: OXYCODONE HYDROCHLORIDE
  5. LOPRESSOR [Concomitant]
     Active Substance: METOPROLOL TARTRATE
     Route: 048
  6. BACLOFEN. [Concomitant]
     Active Substance: BACLOFEN
     Dates: end: 20130325
  7. DIAZEPAM. [Concomitant]
     Active Substance: DIAZEPAM
     Dates: start: 20110824
  8. LISINOPRIL. [Concomitant]
     Active Substance: LISINOPRIL
  9. NAPROXEN. [Concomitant]
     Active Substance: NAPROXEN
  10. LIPITOR [Concomitant]
     Active Substance: ATORVASTATIN CALCIUM
  11. TYLENOL [Concomitant]
     Active Substance: ACETAMINOPHEN
  12. CYCLOBENZAPRINE HYDROCHLORIDE. [Concomitant]
     Active Substance: CYCLOBENZAPRINE HYDROCHLORIDE
     Dates: start: 20100311
  13. ENDOCET [Concomitant]
     Active Substance: ACETAMINOPHEN\OXYCODONE HYDROCHLORIDE
     Dates: start: 20110823
  14. ESOMEPRAZOLE MAGNESIUM. [Concomitant]
     Active Substance: ESOMEPRAZOLE MAGNESIUM
  15. MORPHINE [Concomitant]
     Active Substance: MORPHINE
     Route: 048
  16. VALIUM [Concomitant]
     Active Substance: DIAZEPAM
  17. PROTONIX [Concomitant]
     Active Substance: PANTOPRAZOLE SODIUM
  18. PRILOSEC [Concomitant]
     Active Substance: OMEPRAZOLE MAGNESIUM
  19. CELEBREX [Concomitant]
     Active Substance: CELECOXIB
  20. PIPERACILLIN [Concomitant]
     Active Substance: PIPERACILLIN
  21. ALBUTEROL. [Concomitant]
     Active Substance: ALBUTEROL
  22. LOVENOX [Concomitant]
     Active Substance: ENOXAPARIN SODIUM
  23. NORVASC [Concomitant]
     Active Substance: AMLODIPINE BESYLATE
  24. LYRICA [Concomitant]
     Active Substance: PREGABALIN
     Dates: start: 20101210
  25. TRAMADOL. [Concomitant]
     Active Substance: TRAMADOL
     Dosage: Q8H/Q8H
     Dates: start: 20121009, end: 20130325
  26. DILAUDID [Concomitant]
     Active Substance: HYDROMORPHONE HYDROCHLORIDE
  27. PRAVACHOL [Concomitant]
     Active Substance: PRAVASTATIN SODIUM
  28. UROXATRAL [Concomitant]
     Active Substance: ALFUZOSIN HYDROCHLORIDE
     Route: 048
  29. PLAVIX [Suspect]
     Active Substance: CLOPIDOGREL BISULFATE
     Indication: STENT PLACEMENT
     Route: 048
     Dates: start: 20100505, end: 20100813
  30. ANCEF [Concomitant]
     Active Substance: CEFAZOLIN SODIUM
     Dosage: INTRAVENOUS PIGGUBACK EVEY 8 HOURS
     Route: 042
  31. ZESTRIL [Concomitant]
     Active Substance: LISINOPRIL
     Route: 048
  32. KAPIDEX [Concomitant]
     Active Substance: DEXLANSOPRAZOLE
     Route: 048
  33. ZOLOFT [Concomitant]
     Active Substance: SERTRALINE HYDROCHLORIDE
     Route: 048
  34. BACLOFEN. [Concomitant]
     Active Substance: BACLOFEN
     Dates: start: 20120822, end: 20120822
  35. PREVACID [Concomitant]
     Active Substance: LANSOPRAZOLE
  36. CIPRO [Concomitant]
     Active Substance: CIPROFLOXACIN HYDROCHLORIDE
     Dosage: INTRAVENOUS PIGGYBACK EVERY 12 HOURS
     Route: 042
  37. PERPHENAZINE/DIAZEPAM/AMITRIPTYLINE HYDROCHLORIDE [Concomitant]
     Dosage: 25 MG?1 AT BED TIME
  38. CHLORZOXAZONE. [Concomitant]
     Active Substance: CHLORZOXAZONE
     Dosage: 500 MG?2X A DAY
  39. ACETAMINOPHEN. [Concomitant]
     Active Substance: ACETAMINOPHEN
     Route: 048
     Dates: start: 201004
  40. HYDROCODONE [Concomitant]
     Active Substance: HYDROCODONE
  41. GABAPENTIN. [Concomitant]
     Active Substance: GABAPENTIN
     Dates: start: 20121004
  42. METOPROLOL. [Concomitant]
     Active Substance: METOPROLOL
     Dosage: 50 MG 1 TABLET A DAY
     Route: 048
  43. VANCOMYCIN [Concomitant]
     Active Substance: VANCOMYCIN
  44. ETODOLAC. [Concomitant]
     Active Substance: ETODOLAC
     Dosage: 500 MG?1 TABLET 2X A DAY
  45. KETOROLAC [Concomitant]
     Active Substance: KETOROLAC\KETOROLAC TROMETHAMINE
     Route: 030
     Dates: start: 201004
  46. BENICAR [Concomitant]
     Active Substance: OLMESARTAN MEDOXOMIL
     Dosage: 40/25 HALF  A TAB
     Route: 048

REACTIONS (3)
  - Neuralgia [Not Recovered/Not Resolved]
  - Haemorrhage [Unknown]
  - Nerve injury [Not Recovered/Not Resolved]

NARRATIVE: CASE EVENT DATE: 201008
